FAERS Safety Report 14995940 (Version 2)
Quarter: 2018Q3

REPORT INFORMATION
  Report Type: Spontaneous
  Country: PL (occurrence: PL)
  Receive Date: 20180611
  Receipt Date: 20180710
  Transmission Date: 20181010
  Serious: Yes (Hospitalization)
  Sender: FDA-Public Use
  Company Number: PL-LINDE-PL-LHC-2018132

PATIENT
  Age: 40 Year
  Sex: Female

DRUGS (1)
  1. OXYGEN (GENERIC) [Suspect]
     Active Substance: OXYGEN
     Indication: PRODUCT USED FOR UNKNOWN INDICATION
     Route: 065

REACTIONS (5)
  - Dyspnoea [Recovered/Resolved]
  - Shock [Recovered/Resolved]
  - Asphyxia [Recovered/Resolved]
  - Pleural effusion [Recovered/Resolved]
  - Blood pressure decreased [Recovered/Resolved]

NARRATIVE: CASE EVENT DATE: 20180508
